FAERS Safety Report 9037586 (Version 1)
Quarter: 2013Q1

REPORT INFORMATION
  Report Type: Report from Study
  Country: US (occurrence: US)
  Receive Date: 20130129
  Receipt Date: 20130129
  Transmission Date: 20140127
  Serious: No
  Sender: FDA-Public Use
  Company Number: US-ABBOTT-12P-163-0894282-00

PATIENT
  Age: 48 Year
  Sex: Female
  Weight: 83.99 kg

DRUGS (5)
  1. HUMIRA 40 MG/0.8 ML PEN [Suspect]
     Indication: PSORIATIC ARTHROPATHY
     Dates: start: 20120113
  2. ZERTEC [Concomitant]
     Indication: PRODUCT USED FOR UNKNOWN INDICATION
  3. HCTZ [Concomitant]
     Indication: PROPHYLAXIS
  4. POTASSIUM CITRATE [Concomitant]
     Indication: PROPHYLAXIS
  5. VIT D [Concomitant]
     Indication: PRODUCT USED FOR UNKNOWN INDICATION

REACTIONS (4)
  - Dry mouth [Recovering/Resolving]
  - Pruritus [Recovering/Resolving]
  - Oedema mouth [Recovering/Resolving]
  - Dysphonia [Recovering/Resolving]
